FAERS Safety Report 10640987 (Version 4)
Quarter: 2015Q2

REPORT INFORMATION
  Report Type: Report from Study
  Country: US (occurrence: US)
  Receive Date: 20141209
  Receipt Date: 20150609
  Transmission Date: 20150821
  Serious: Yes (Other)
  Sender: FDA-Public Use
  Company Number: US-SA-2014SA002982

PATIENT
  Age: 58 Year
  Sex: Female
  Weight: 62.59 kg

DRUGS (10)
  1. AMPYRA [Concomitant]
     Active Substance: DALFAMPRIDINE
  2. AMLODIPINE [Concomitant]
     Active Substance: AMLODIPINE BESYLATE
  3. VITAMIN D [Concomitant]
     Active Substance: CHOLECALCIFEROL
  4. EPITOL [Concomitant]
     Active Substance: CARBAMAZEPINE
     Dosage: 1 EVERY 8 HOURS AS NEEDED
  5. AUBAGIO [Suspect]
     Active Substance: TERIFLUNOMIDE
     Indication: MULTIPLE SCLEROSIS
     Route: 048
     Dates: start: 20130528
  6. LEVOTHYROXINE [Concomitant]
     Active Substance: LEVOTHYROXINE
  7. GABAPENTIN. [Concomitant]
     Active Substance: GABAPENTIN
  8. LUMIGAN [Concomitant]
     Active Substance: BIMATOPROST
     Dosage: 1 DROP IN EACH EYE
  9. AUBAGIO [Suspect]
     Active Substance: TERIFLUNOMIDE
     Indication: MULTIPLE SCLEROSIS
     Route: 048
  10. OXYBUTYNIN [Concomitant]
     Active Substance: OXYBUTYNIN

REACTIONS (11)
  - Trigeminal neuralgia [Unknown]
  - Fatigue [Unknown]
  - Musculoskeletal stiffness [Unknown]
  - Dizziness [Unknown]
  - Alopecia [Not Recovered/Not Resolved]
  - Drug dose omission [Unknown]
  - Road traffic accident [Unknown]
  - Dry mouth [Unknown]
  - Muscle spasms [Unknown]
  - Insomnia [Unknown]
  - Muscular weakness [Unknown]

NARRATIVE: CASE EVENT DATE: 201411
